FAERS Safety Report 9736479 (Version 4)
Quarter: 2014Q1

REPORT INFORMATION
  Report Type: Report from Study
  Country: US (occurrence: US)
  Receive Date: 20131206
  Receipt Date: 20140103
  Transmission Date: 20141002
  Serious: Yes (Hospitalization, Other)
  Sender: FDA-Public Use
  Company Number: US-PFIZER INC-2013340910

PATIENT
  Age: 11 Year
  Sex: Female
  Weight: 30.3 kg

DRUGS (7)
  1. CRIZOTINIB [Suspect]
     Indication: OSTEOSARCOMA
     Dosage: 280 MG/M2/DOSE, BY MOUTH, 2 X DAY, EVERY 21 DAYS
     Route: 048
     Dates: start: 20131119, end: 20131125
  2. DOXORUBICIN HCL [Suspect]
     Indication: OSTEOSARCOMA
     Dosage: 45 MG/M2/DOSE, IV, ON DAY 1, REPEAT EVERY 21 DAYS
     Route: 042
     Dates: start: 20131119, end: 20131119
  3. ZINECARD [Suspect]
     Indication: OSTEOSARCOMA
     Dosage: 450 MG/M2/DOSE, IV, ON DAY 1, REPEAT EVERY 21 DAYS
     Route: 042
     Dates: start: 20131119, end: 20131119
  4. VINCRISTINE SULFATE [Suspect]
     Indication: OSTEOSARCOMA
     Dosage: 1.5 MG/M2/DOSE, IV, ON DAY 1, REPEAT EVERY 21 DAYS
     Route: 042
     Dates: start: 20131119, end: 20131119
  5. ZOFRAN [Suspect]
  6. BACTRIM [Concomitant]
  7. OXYCONTIN [Concomitant]

REACTIONS (13)
  - Dehydration [Recovering/Resolving]
  - Palpitations [Recovering/Resolving]
  - Presyncope [Recovering/Resolving]
  - Sinus tachycardia [Recovering/Resolving]
  - Dyspnoea [Recovering/Resolving]
  - Back pain [Recovering/Resolving]
  - Tumour pain [Recovering/Resolving]
  - Hypokalaemia [Recovered/Resolved]
  - Hyponatraemia [Recovered/Resolved]
  - Embolism [Recovering/Resolving]
  - Fanconi syndrome [Recovering/Resolving]
  - Inappropriate antidiuretic hormone secretion [Recovering/Resolving]
  - Pyrexia [Recovered/Resolved]
